FAERS Safety Report 8458639-2 (Version None)
Quarter: 2012Q2

REPORT INFORMATION
  Report Type: 
  Country: None (occurrence: None)
  Receive Date: 20120622
  Receipt Date: 20120618
  Transmission Date: 20120825
  Serious: Yes (Disabling, Other)
  Sender: FDA-Public Use
  Company Number: US-PFIZER INC-2012147405

PATIENT
  Sex: Male
  Weight: 78.458 kg

DRUGS (1)
  1. RELPAX [Suspect]
     Indication: MIGRAINE
     Dosage: 40 MG, UNK
     Dates: start: 20110601, end: 20120601

REACTIONS (4)
  - BACK INJURY [None]
  - ACCIDENT AT WORK [None]
  - INTERVERTEBRAL DISC PROTRUSION [None]
  - CERVICAL SPINAL STENOSIS [None]
